FAERS Safety Report 8960490 (Version 1)
Quarter: 2012Q4

REPORT INFORMATION
  Report Type: Spontaneous
  Country: US (occurrence: None)
  Receive Date: 20121207
  Receipt Date: 20121207
  Transmission Date: 20130627
  Serious: Yes (Other)
  Sender: FDA-Public Use
  Company Number: None

PATIENT
  Sex: Female
  Weight: 79.38 kg

DRUGS (1)
  1. MIRENA IUD [Suspect]
     Indication: BIRTH CONTROL
     Dates: start: 20080401, end: 20100801

REACTIONS (4)
  - Uterine perforation [None]
  - Device dislocation [None]
  - Menorrhagia [None]
  - Dysmenorrhoea [None]
